FAERS Safety Report 10055640 (Version 1)
Quarter: 2014Q2

REPORT INFORMATION
  Report Type: Spontaneous
  Country: US (occurrence: None)
  Receive Date: 20140402
  Receipt Date: 20140402
  Transmission Date: 20141212
  Serious: Yes (Other)
  Sender: FDA-Public Use
  Company Number: None

PATIENT
  Age: 51 Year
  Sex: Female
  Weight: 58.06 kg

DRUGS (2)
  1. MINIVELLE [Suspect]
     Indication: NIGHT SWEATS
     Dosage: APPLIED AS MEDICATED PATCH TO SKIN
     Dates: start: 20140328, end: 20140330
  2. MINIVELLE [Suspect]
     Indication: MENOPAUSE
     Dosage: APPLIED AS MEDICATED PATCH TO SKIN
     Dates: start: 20140328, end: 20140330

REACTIONS (6)
  - Breast tenderness [None]
  - Headache [None]
  - Joint swelling [None]
  - Breast pain [None]
  - Peripheral swelling [None]
  - Paraesthesia [None]
